FAERS Safety Report 10183162 (Version 1)
Quarter: 2014Q2

REPORT INFORMATION
  Report Type: Spontaneous
  Country: IT (occurrence: IT)
  Receive Date: 20140520
  Receipt Date: 20140520
  Transmission Date: 20141212
  Serious: Yes (Other)
  Sender: FDA-Public Use
  Company Number: IT-ROCHE-1399482

PATIENT
  Age: 56 Year
  Sex: Male

DRUGS (8)
  1. RITUXIMAB [Suspect]
     Indication: WALDENSTROM^S MACROGLOBULINAEMIA
     Route: 042
  2. RITUXIMAB [Suspect]
     Dosage: QUARTERLY UNTIL MARCH 2012
     Route: 042
     Dates: start: 201101
  3. CYCLOPHOSPHAMIDE [Concomitant]
     Indication: WALDENSTROM^S MACROGLOBULINAEMIA
     Dosage: ON DAY 1
     Route: 042
  4. CYCLOPHOSPHAMIDE [Concomitant]
     Indication: POEMS SYNDROME
  5. VINCRISTINE [Concomitant]
     Indication: WALDENSTROM^S MACROGLOBULINAEMIA
     Route: 042
  6. VINCRISTINE [Concomitant]
     Indication: POEMS SYNDROME
  7. PREDNISONE [Concomitant]
     Indication: WALDENSTROM^S MACROGLOBULINAEMIA
     Dosage: ON DAYS 1-5
     Route: 048
  8. PREDNISONE [Concomitant]
     Indication: POEMS SYNDROME

REACTIONS (1)
  - Osteonecrosis of jaw [Recovering/Resolving]
